FAERS Safety Report 15315328 (Version 1)
Quarter: 2018Q3

REPORT INFORMATION
  Report Type: Spontaneous
  Country: IN (occurrence: IN)
  Receive Date: 20180824
  Receipt Date: 20180824
  Transmission Date: 20181010
  Serious: Yes (Hospitalization)
  Sender: FDA-Public Use
  Company Number: IN-MYLANLABS-2018M1061859

PATIENT
  Sex: Female

DRUGS (3)
  1. MITOXANTRONE [Suspect]
     Active Substance: MITOXANTRONE HYDROCHLORIDE
     Indication: ACUTE MYELOID LEUKAEMIA
     Dosage: SECOND INDUCTION CHEMOTHERAPY REGIMEN OF CYTARABINE, DAUNORUBICIN [DAUNOMYCIN] AND MITOXANTRONE
     Route: 065
  2. DAUNOMYCIN                         /00128201/ [Suspect]
     Active Substance: DAUNORUBICIN
     Indication: ACUTE MYELOID LEUKAEMIA
     Dosage: STANDARD INDUCTION CHEMOTHERAPY REGIMEN OF DAUNORUBICIN [DAUNOMYCIN] AND CYTARABINE 3+7 [SIC], FO...
     Route: 065
  3. CYTARABINE. [Suspect]
     Active Substance: CYTARABINE
     Indication: ACUTE MYELOID LEUKAEMIA
     Dosage: STANDARD INDUCTION CHEMOTHERAPY REGIMEN OF DAUNORUBICIN [DAUNOMYCIN] AND CYTARABINE 3+7 [SIC], FO...
     Route: 065

REACTIONS (2)
  - Metastases to breast [Recovered/Resolved]
  - Invasive ductal breast carcinoma [Recovered/Resolved]

NARRATIVE: CASE EVENT DATE: 201402
